FAERS Safety Report 9495665 (Version 3)
Quarter: 2013Q4

REPORT INFORMATION
  Report Type: Spontaneous
  Country: US (occurrence: US)
  Receive Date: 20130903
  Receipt Date: 20131017
  Transmission Date: 20140711
  Serious: Yes (Other)
  Sender: FDA-Public Use
  Company Number: US-PFIZER INC-2013250115

PATIENT
  Age: 59 Year
  Sex: Male
  Weight: 82.54 kg

DRUGS (2)
  1. VIAGRA [Suspect]
     Indication: ERECTILE DYSFUNCTION
     Dosage: 100 MG, AS NEEDED
  2. TESTOSTERONE [Concomitant]
     Indication: BLOOD TESTOSTERONE DECREASED
     Dosage: 0.5 ML, WEEKLY

REACTIONS (5)
  - Brain injury [Unknown]
  - Visual field defect [Unknown]
  - Visual brightness [Unknown]
  - Therapeutic response unexpected [Unknown]
  - Nasal congestion [Unknown]
